FAERS Safety Report 17080264 (Version 2)
Quarter: 2019Q4

REPORT INFORMATION
  Report Type: Report from Study
  Country: US (occurrence: US)
  Receive Date: 20191127
  Receipt Date: 20191202
  Transmission Date: 20200122
  Serious: Yes (Death)
  Sender: FDA-Public Use
  Company Number: US-ROCHE-2477563

PATIENT
  Age: 64 Year
  Sex: Male

DRUGS (9)
  1. 5 FU [Concomitant]
     Active Substance: FLUOROURACIL
     Dosage: DAYS 1,8, 15, 22, 29,36
     Route: 042
  2. LEUCOVORIN [FOLINIC ACID] [Concomitant]
     Active Substance: LEUCOVORIN
     Dosage: DAYS 1,8, 15, 22, 29,36
     Route: 065
     Dates: start: 20181210
  3. FUSILEV [Concomitant]
     Active Substance: LEVOLEUCOVORIN CALCIUM
     Dosage: DAYS 1,8, 15, 22, 29,36
     Route: 065
     Dates: start: 20181210
  4. ZOFRAN [Concomitant]
     Active Substance: ONDANSETRON HYDROCHLORIDE
     Dosage: DAYS 1, 8,15, 22, 29, 36
     Route: 042
  5. KYTRIL [Concomitant]
     Active Substance: GRANISETRON HYDROCHLORIDE
     Dosage: DAYS 1, 8,15, 22, 29, 36
     Route: 042
  6. AVASTIN [Suspect]
     Active Substance: BEVACIZUMAB
     Route: 042
  7. AVASTIN [Suspect]
     Active Substance: BEVACIZUMAB
     Indication: MALIGNANT NEOPLASM OF UNKNOWN PRIMARY SITE
     Route: 042
     Dates: start: 20180703
  8. AVASTIN [Suspect]
     Active Substance: BEVACIZUMAB
     Indication: SMALL INTESTINE CARCINOMA
     Dosage: DAYS 1 , 15, 29 AND 43
     Route: 042
  9. DECADRON [Concomitant]
     Active Substance: DEXAMETHASONE
     Dosage: DAYS 1, 8,15, 22, 29, 36
     Route: 042

REACTIONS (3)
  - Intentional product use issue [Unknown]
  - Death [Fatal]
  - Off label use [Unknown]

NARRATIVE: CASE EVENT DATE: 20191028
